FAERS Safety Report 5493208-8 (Version None)
Quarter: 2007Q4

REPORT INFORMATION
  Report Type: 
  Country: None (occurrence: None)
  Receive Date: 20071023
  Receipt Date: 20071018
  Transmission Date: 20080405
  Serious: Yes (Life-Threatening, Hospitalization)
  Sender: FDA-Public Use
  Company Number: B0486670A

PATIENT
  Age: 31 Year
  Sex: Male
  Weight: 60 kg

DRUGS (10)
  1. PAXIL [Suspect]
     Indication: SCHIZOPHRENIA
     Dosage: 10MG PER DAY
     Route: 048
     Dates: start: 20060610, end: 20060711
  2. RISPERDAL [Suspect]
     Indication: SCHIZOPHRENIA
     Route: 048
     Dates: start: 20060311, end: 20060708
  3. SEPAZON [Concomitant]
     Indication: SCHIZOPHRENIA
     Route: 048
     Dates: start: 20060311, end: 20060609
  4. AKINETON [Concomitant]
     Indication: SCHIZOPHRENIA
     Route: 048
     Dates: start: 20060311, end: 20060711
  5. IMPROMEN [Concomitant]
     Indication: SCHIZOPHRENIA
     Route: 048
     Dates: start: 20060311, end: 20060711
  6. ESTAZOLAM [Concomitant]
     Indication: SCHIZOPHRENIA
     Route: 048
     Dates: start: 20060311, end: 20060711
  7. ROHYPNOL [Concomitant]
     Indication: SCHIZOPHRENIA
     Route: 048
     Dates: start: 20060311, end: 20060711
  8. LULLAN [Concomitant]
     Indication: SCHIZOPHRENIA
     Route: 048
     Dates: start: 20060311, end: 20060711
  9. HIRNAMIN [Concomitant]
     Indication: SCHIZOPHRENIA
     Route: 048
     Dates: start: 20060311, end: 20060711
  10. VEGETAMIN A [Concomitant]
     Indication: SCHIZOPHRENIA
     Route: 048
     Dates: start: 20060311, end: 20060711

REACTIONS (14)
  - ALTERED STATE OF CONSCIOUSNESS [None]
  - BEDRIDDEN [None]
  - DECUBITUS ULCER [None]
  - DISUSE SYNDROME [None]
  - DRUG LEVEL INCREASED [None]
  - DYSLALIA [None]
  - DYSSTASIA [None]
  - GAIT DISTURBANCE [None]
  - ILL-DEFINED DISORDER [None]
  - MOBILITY DECREASED [None]
  - MUSCULAR WEAKNESS [None]
  - NEUROLEPTIC MALIGNANT SYNDROME [None]
  - PYREXIA [None]
  - SPEECH DISORDER [None]
